FAERS Safety Report 10057020 (Version 1)
Quarter: 2014Q2

REPORT INFORMATION
  Report Type: Spontaneous
  Country: GB (occurrence: GB)
  Receive Date: 20140403
  Receipt Date: 20140403
  Transmission Date: 20141212
  Serious: Yes (Death)
  Sender: FDA-Public Use
  Company Number: GB-SA-2014SA036842

PATIENT
  Age: 66 Year
  Sex: Female

DRUGS (12)
  1. OXALIPLATIN [Suspect]
     Indication: COLORECTAL CANCER METASTATIC
     Dosage: FREQUENCY REPORTED AS EVERY 21/7
     Route: 042
     Dates: start: 20090119
  2. XELODA [Suspect]
     Indication: COLORECTAL CANCER METASTATIC
     Route: 048
     Dates: start: 20090119, end: 20090221
  3. AVASTIN [Suspect]
     Indication: COLORECTAL CANCER METASTATIC
     Route: 065
  4. AVASTIN [Suspect]
     Indication: METASTASES TO LUNG
     Route: 065
  5. AVASTIN [Suspect]
     Indication: METASTASES TO LIVER
     Route: 065
  6. NEUPOGEN [Concomitant]
     Indication: NEUTROPENIA
  7. BUSCOPAN [Concomitant]
  8. HALOPERIDOL [Concomitant]
     Dates: start: 20090225, end: 20090301
  9. CIPROFLOXACIN [Concomitant]
     Dates: start: 20090221, end: 20090301
  10. MORPHINE [Concomitant]
  11. CEFUROXIME [Concomitant]
     Indication: PYREXIA
     Dosage: INDICATION REPORTED AS PYREXIA AND NEUTROPENIA
  12. CEFUROXIME [Concomitant]
     Indication: NEUTROPENIA
     Dosage: INDICATION REPORTED AS PYREXIA AND NEUTROPENIA

REACTIONS (3)
  - Colitis ischaemic [Fatal]
  - Diarrhoea [Fatal]
  - Migraine [Not Recovered/Not Resolved]
